FAERS Safety Report 7827512-2 (Version None)
Quarter: 2011Q4

REPORT INFORMATION
  Report Type: 
  Country: None (occurrence: None)
  Receive Date: 20111019
  Receipt Date: 20111019
  Transmission Date: 20120403
  Serious: Yes (Hospitalization)
  Sender: FDA-Public Use
  Company Number: None

PATIENT
  Age: 58 Year
  Sex: Male
  Weight: 92.9 kg

DRUGS (1)
  1. RITUXIMAB [Suspect]
     Indication: CRYOGLOBULINAEMIA
     Dosage: 700 MG QWEEK IV
     Route: 042
     Dates: start: 20110920, end: 20110927

REACTIONS (1)
  - OEDEMA PERIPHERAL [None]
